FAERS Safety Report 23932612 (Version 1)
Quarter: 2024Q2

REPORT INFORMATION
  Report Type: Spontaneous
  Country: US (occurrence: US)
  Receive Date: 20240603
  Receipt Date: 20240603
  Transmission Date: 20240715
  Serious: Yes (Other)
  Sender: FDA-Public Use
  Company Number: US-AZURITY PHARMACEUTICALS, INC.-US-2024AZR000318

PATIENT
  Age: 28 Year
  Sex: Female

DRUGS (8)
  1. ZONISADE [Suspect]
     Active Substance: ZONISAMIDE
     Indication: Partial seizures
     Dosage: UNK
     Route: 065
     Dates: start: 20240305, end: 2024
  2. ZONISADE [Suspect]
     Active Substance: ZONISAMIDE
     Indication: Seizure
  3. KEPPRA [Concomitant]
     Active Substance: LEVETIRACETAM
     Indication: Partial seizures
     Dosage: UNK
     Route: 065
  4. KEPPRA [Concomitant]
     Active Substance: LEVETIRACETAM
     Indication: Seizure
  5. TRILEPTAL [Concomitant]
     Active Substance: OXCARBAZEPINE
     Indication: Partial seizures
     Dosage: UNK
     Route: 065
  6. TRILEPTAL [Concomitant]
     Active Substance: OXCARBAZEPINE
     Indication: Seizure
  7. CENOBAMATE [Concomitant]
     Active Substance: CENOBAMATE
     Indication: Partial seizures
     Dosage: UNK
     Route: 065
  8. CENOBAMATE [Concomitant]
     Active Substance: CENOBAMATE
     Indication: Seizure

REACTIONS (7)
  - Neutropenia [Not Recovered/Not Resolved]
  - Immune system disorder [Unknown]
  - Anaemia [Not Recovered/Not Resolved]
  - White blood cell count decreased [Unknown]
  - Oxygen saturation decreased [Unknown]
  - Adverse reaction [Unknown]
  - Malaise [Unknown]

NARRATIVE: CASE EVENT DATE: 20240101
